FAERS Safety Report 7605764-1 (Version None)
Quarter: 2011Q3

REPORT INFORMATION
  Report Type: 
  Country: None (occurrence: None)
  Receive Date: 20110713
  Receipt Date: 20110701
  Transmission Date: 20111222
  Serious: Yes (Hospitalization)
  Sender: FDA-Public Use
  Company Number: CH-CELGENEUS-151-21880-11070045

PATIENT
  Age: 51 Year
  Sex: Female

DRUGS (4)
  1. LAXOBERONE [Concomitant]
     Dosage: 5 UNKNOWN
     Route: 065
  2. ENOXAPARIN SODIUM [Concomitant]
     Indication: THROMBOSIS PROPHYLAXIS
     Dosage: 20 MILLIGRAM
     Route: 058
  3. ENOXAPARIN SODIUM [Concomitant]
     Dosage: 20 MILLIGRAM
     Route: 058
     Dates: start: 20110701, end: 20110705
  4. REVLIMID [Suspect]
     Indication: CACHEXIA
     Route: 048
     Dates: start: 20110603

REACTIONS (3)
  - DEHYDRATION [None]
  - BLOOD CREATININE ABNORMAL [None]
  - SINUS TACHYCARDIA [None]
